FAERS Safety Report 16918629 (Version 1)
Quarter: 2019Q4

REPORT INFORMATION
  Report Type: Other
  Country: CA (occurrence: CA)
  Receive Date: 20191015
  Receipt Date: 20191015
  Transmission Date: 20200122
  Serious: Yes (Life-Threatening)
  Sender: FDA-Public Use
  Company Number: CA-PFIZER INC-2019442543

PATIENT
  Age: 88 Year
  Sex: Male

DRUGS (8)
  1. INDAPAMIDE. [Interacting]
     Active Substance: INDAPAMIDE
     Dosage: UNK
     Route: 048
  2. PERINDOPRIL [Interacting]
     Active Substance: PERINDOPRIL
     Dosage: UNK
     Route: 048
  3. VALSARTAN. [Interacting]
     Active Substance: VALSARTAN
     Dosage: UNK
     Route: 048
  4. ATORVASTATIN CALCIUM. [Suspect]
     Active Substance: ATORVASTATIN CALCIUM
     Dosage: UNK
     Route: 048
  5. GLICLAZIDE [Interacting]
     Active Substance: GLICLAZIDE
     Dosage: UNK
     Route: 048
  6. ACARBOSE. [Interacting]
     Active Substance: ACARBOSE
     Dosage: UNK
     Route: 048
  7. METFORMIN [Interacting]
     Active Substance: METFORMIN HYDROCHLORIDE
     Dosage: UNK
     Route: 048
  8. WARFARIN [Interacting]
     Active Substance: WARFARIN
     Dosage: UNK
     Route: 048

REACTIONS (4)
  - Acute kidney injury [Recovered/Resolved]
  - Hypoglycaemia [Recovered/Resolved]
  - Drug interaction [Recovered/Resolved]
  - Hyperkalaemia [Recovered/Resolved]
